FAERS Safety Report 12434619 (Version 1)
Quarter: 2016Q2

REPORT INFORMATION
  Report Type: Spontaneous
  Country: US (occurrence: US)
  Receive Date: 20160603
  Receipt Date: 20160603
  Transmission Date: 20160815
  Serious: Yes (Hospitalization, Other)
  Sender: FDA-Public Use
  Company Number: US-ABBVIE-16P-163-1643148-00

PATIENT
  Age: 22 Year
  Sex: Female

DRUGS (1)
  1. LUPRON DEPOT [Suspect]
     Active Substance: LEUPROLIDE ACETATE
     Indication: ENDOMETRIOSIS
     Route: 030

REACTIONS (8)
  - Pain [Unknown]
  - Abdominal adhesions [Unknown]
  - Personal relationship issue [Unknown]
  - Hospitalisation [Unknown]
  - Adnexal torsion [Unknown]
  - Surgery [Unknown]
  - Physiotherapy [Unknown]
  - Menopause [Unknown]
